FAERS Safety Report 6610515-3 (Version None)
Quarter: 2010Q1

REPORT INFORMATION
  Report Type: 
  Country: None (occurrence: None)
  Receive Date: 20100302
  Receipt Date: 20100216
  Transmission Date: 20100710
  Serious: Yes (Hospitalization)
  Sender: FDA-Public Use
  Company Number: DK-MYLANLABS-2010S1002635

PATIENT
  Sex: Male

DRUGS (1)
  1. DICLOFENAC [Suspect]
     Indication: PAIN
     Route: 065
     Dates: start: 20080519, end: 20080716

REACTIONS (2)
  - ABDOMINAL HERNIA [None]
  - GASTRIC ULCER PERFORATION [None]
